FAERS Safety Report 9597419 (Version 1)
Quarter: 2013Q4

REPORT INFORMATION
  Report Type: Spontaneous
  Country: US (occurrence: US)
  Receive Date: 20131004
  Receipt Date: 20131004
  Transmission Date: 20140711
  Serious: No
  Sender: FDA-Public Use
  Company Number: US-AMGEN-USASP2013019155

PATIENT
  Age: 41 Year
  Sex: Female
  Weight: 58.05 kg

DRUGS (5)
  1. ENBREL [Suspect]
     Indication: RHEUMATOID ARTHRITIS
     Dosage: 50 MG, EVERY WEEK
     Route: 058
  2. MULTIVITAMINS W/MINERALS [Concomitant]
     Dosage: UNK
  3. NAPROXEN SOD [Concomitant]
     Dosage: 220 MG, UNK
  4. AREDIA [Concomitant]
     Dosage: 30 MG, UNK
  5. CELEXA                             /00582602/ [Concomitant]
     Dosage: 20 MG, UNK

REACTIONS (1)
  - Drug ineffective [Unknown]
